FAERS Safety Report 14495207 (Version 1)
Quarter: 2018Q1

REPORT INFORMATION
  Report Type: Spontaneous
  Country: JP (occurrence: JP)
  Receive Date: 20180206
  Receipt Date: 20180206
  Transmission Date: 20180509
  Serious: Yes (Other)
  Sender: FDA-Public Use
  Company Number: JP-BAUSCH-BL-2018-002887

PATIENT
  Age: 65 Year
  Sex: Male

DRUGS (1)
  1. BRONUCK OPHTHALMIC SOLUTION 0.1 PERCENT [Suspect]
     Active Substance: BROMFENAC SODIUM
     Indication: PRODUCT USED FOR UNKNOWN INDICATION
     Route: 047

REACTIONS (5)
  - Erythema of eyelid [Not Recovered/Not Resolved]
  - Eyelid oedema [Not Recovered/Not Resolved]
  - Eyelids pruritus [Not Recovered/Not Resolved]
  - Posterior capsule opacification [Unknown]
  - Glaucoma [Unknown]

NARRATIVE: CASE EVENT DATE: 2016
